FAERS Safety Report 8491507-9 (Version None)
Quarter: 2012Q3

REPORT INFORMATION
  Report Type: 
  Country: None (occurrence: None)
  Receive Date: 20120706
  Receipt Date: 20120627
  Transmission Date: 20120928
  Serious: Yes (Death)
  Sender: FDA-Public Use
  Company Number: IT-JNJFOC-20120604493

PATIENT
  Sex: Male
  Weight: 87 kg

DRUGS (2)
  1. ABIRATERONE ACETATE [Suspect]
     Indication: PROSTATE CANCER METASTATIC
     Route: 048
     Dates: start: 20120528
  2. ABIRATERONE ACETATE [Suspect]
     Route: 048

REACTIONS (1)
  - CARDIAC ARREST [None]
